FAERS Safety Report 20648691 (Version 1)
Quarter: 2022Q1

REPORT INFORMATION
  Report Type: Spontaneous
  Country: US (occurrence: None)
  Receive Date: 20220329
  Receipt Date: 20220329
  Transmission Date: 20220423
  Serious: No
  Sender: FDA-Public Use
  Company Number: 2022A110296

PATIENT
  Age: 739 Month
  Sex: Female
  Weight: 104.3 kg

DRUGS (1)
  1. BUDESONIDE\FORMOTEROL\GLYCOPYRRONIUM [Suspect]
     Active Substance: BUDESONIDE\FORMOTEROL\GLYCOPYRRONIUM
     Indication: Chronic obstructive pulmonary disease
     Dosage: 160/9/4.8MCG, 2 PUFFS, TWICE A DAY
     Route: 055
     Dates: start: 202201

REACTIONS (6)
  - Visual impairment [Unknown]
  - Wheezing [Recovered/Resolved]
  - Cough [Recovered/Resolved]
  - Drug ineffective [Recovered/Resolved]
  - Product dose omission issue [Unknown]
  - Wrong technique in device usage process [Unknown]

NARRATIVE: CASE EVENT DATE: 20220201
